FAERS Safety Report 14328802 (Version 1)
Quarter: 2017Q4

REPORT INFORMATION
  Report Type: Spontaneous
  Country: DE (occurrence: DE)
  Receive Date: 20171227
  Receipt Date: 20171227
  Transmission Date: 20180321
  Serious: Yes (Other)
  Sender: FDA-Public Use
  Company Number: DE-PFIZER INC-2017379451

PATIENT
  Age: 62 Year
  Sex: Female
  Weight: 70 kg

DRUGS (11)
  1. TARGIN [Concomitant]
     Active Substance: NALOXONE HYDROCHLORIDE\OXYCODONE HYDROCHLORIDE
     Dosage: UNK, 1X/DAY (1DF IN THE MORNING)
     Route: 048
     Dates: start: 2014
  2. IBRANCE [Suspect]
     Active Substance: PALBOCICLIB
     Dosage: 100 MG, DAILY, D 1 - D21, START AT DAY 28
     Route: 048
     Dates: start: 201709
  3. PREGABALIN. [Concomitant]
     Active Substance: PREGABALIN
     Dosage: 50 MG, 2X/DAY (1DF IN THE MORNING, 1DF IN THE EVENING)
     Route: 048
     Dates: start: 2014
  4. IBRANCE [Suspect]
     Active Substance: PALBOCICLIB
     Indication: BREAST CANCER METASTATIC
     Dosage: 125 MG, CYCLIC (FOR 3 WEEKS, ONE WEEK BREAK)
     Route: 048
     Dates: start: 201701
  5. IBRANCE [Suspect]
     Active Substance: PALBOCICLIB
     Dosage: 125 MG, CYCLIC (FOR 3 WEEKS, ONE WEEK BREAK)
     Route: 048
     Dates: start: 20170306, end: 201709
  6. LETROZOLE. [Concomitant]
     Active Substance: LETROZOLE
     Indication: METASTATIC RENAL CELL CARCINOMA
     Dosage: 2.5 MG, 1X/DAY
     Route: 048
     Dates: start: 20170306
  7. TARGIN [Concomitant]
     Active Substance: NALOXONE HYDROCHLORIDE\OXYCODONE HYDROCHLORIDE
     Dosage: UNK, 1X/DAY (1DF IN THE EVENING)
     Route: 048
     Dates: start: 2014
  8. IDEOS [Concomitant]
     Active Substance: CALCIUM CARBONATE\CHOLECALCIFEROL
     Dosage: 500 MG /400 IE
     Dates: start: 2009
  9. ZOLEDRONATE [Concomitant]
     Active Substance: ZOLEDRONIC ACID
     Indication: METASTASES TO BONE
     Dosage: 4MG Q3M
     Route: 042
     Dates: start: 201203
  10. SELENASE [Concomitant]
     Dosage: UNK
     Dates: start: 2009
  11. ESOMEPRAZOLE [Concomitant]
     Active Substance: ESOMEPRAZOLE
     Dosage: UNK, 1X/DAY (1DF IN THE MORNING)

REACTIONS (8)
  - Neutropenia [Recovered/Resolved]
  - Febrile infection [Recovered/Resolved]
  - Weight increased [Not Recovered/Not Resolved]
  - Haematotoxicity [Not Recovered/Not Resolved]
  - Fatigue [Not Recovered/Not Resolved]
  - Nausea [Recovered/Resolved]
  - Alopecia [Recovered/Resolved]
  - Mucosal inflammation [Recovered/Resolved]

NARRATIVE: CASE EVENT DATE: 201702
